FAERS Safety Report 23506445 (Version 1)
Quarter: 2024Q1

REPORT INFORMATION
  Report Type: Spontaneous
  Country: PT (occurrence: PT)
  Receive Date: 20240209
  Receipt Date: 20240209
  Transmission Date: 20240410
  Serious: Yes (Other)
  Sender: FDA-Public Use
  Company Number: PT-Inventia-000696

PATIENT
  Age: 62 Year
  Sex: Female

DRUGS (3)
  1. DULOXETINE [Interacting]
     Active Substance: DULOXETINE
     Indication: Fibromyalgia
  2. CARVEDILOL [Interacting]
     Active Substance: CARVEDILOL
     Indication: Hypertension
     Dosage: 1+0+1
  3. SIMVASTATIN [Interacting]
     Active Substance: SIMVASTATIN
     Indication: Dyslipidaemia
     Dosage: 0+0+1

REACTIONS (3)
  - Hallucination, visual [Recovered/Resolved]
  - Drug interaction [Unknown]
  - Drug level increased [Unknown]
